FAERS Safety Report 6691126-0 (Version None)
Quarter: 2010Q2

REPORT INFORMATION
  Report Type: 
  Country: None (occurrence: None)
  Receive Date: 20100422
  Receipt Date: 20100413
  Transmission Date: 20101027
  Serious: Yes (Hospitalization)
  Sender: FDA-Public Use
  Company Number: US-BIOGENIDEC-2010BI012491

PATIENT
  Age: 37 Year
  Sex: Male

DRUGS (1)
  1. TYSABRI [Suspect]
     Indication: MULTIPLE SCLEROSIS
     Route: 042
     Dates: start: 20070103

REACTIONS (6)
  - HEADACHE [None]
  - HYPOAESTHESIA [None]
  - MULTIPLE SCLEROSIS RELAPSE [None]
  - PAIN IN EXTREMITY [None]
  - PARAESTHESIA [None]
  - WEIGHT INCREASED [None]
